FAERS Safety Report 7536209-8 (Version None)
Quarter: 2011Q2

REPORT INFORMATION
  Report Type: 
  Country: None (occurrence: None)
  Receive Date: 20110609
  Receipt Date: 20110602
  Transmission Date: 20111010
  Serious: Yes (Other)
  Sender: FDA-Public Use
  Company Number: US-GENZYME-CAMP-1001617

PATIENT
  Sex: Female
  Weight: 104.31 kg

DRUGS (8)
  1. METHYLPREDNISOLONE [Concomitant]
     Dosage: 1 G, QDX3
     Route: 042
     Dates: start: 20081110, end: 20081112
  2. CAMPATH [Suspect]
     Dosage: 12 MG, QDX5
     Route: 042
     Dates: start: 20071105, end: 20071109
  3. METHYLPREDNISOLONE [Concomitant]
     Indication: MULTIPLE SCLEROSIS
     Dosage: 1 G, QDX3
     Route: 042
     Dates: start: 20071105, end: 20071107
  4. PROZAC [Concomitant]
     Indication: DEPRESSION
     Dosage: 20 MG, QD
     Route: 048
     Dates: start: 20090101
  5. CAMPATH [Suspect]
     Indication: MULTIPLE SCLEROSIS
     Route: 065
  6. CAMPATH [Suspect]
     Dosage: 12 MG, QDX3
     Route: 042
     Dates: start: 20081110, end: 20081112
  7. MULTI-VITAMIN [Concomitant]
     Indication: MEDICAL DIET
     Dosage: 1 TABLET, QD
     Route: 048
     Dates: start: 20100801
  8. FISH OIL [Concomitant]
     Indication: MEDICAL DIET
     Dosage: 1 TABLET, QD
     Route: 048
     Dates: start: 20100701

REACTIONS (1)
  - ABORTION SPONTANEOUS [None]
